FAERS Safety Report 13794718 (Version 2)
Quarter: 2017Q4

REPORT INFORMATION
  Report Type: Spontaneous
  Country: CN (occurrence: CN)
  Receive Date: 20170726
  Receipt Date: 20171109
  Transmission Date: 20180320
  Serious: Yes (Death, Life-Threatening, Hospitalization, Other)
  Sender: FDA-Public Use
  Company Number: CN-SUN PHARMACEUTICAL INDUSTRIES LTD-2017RR-146029

PATIENT
  Age: 14 Year
  Sex: Female

DRUGS (6)
  1. FLUCONAZOLE. [Suspect]
     Active Substance: FLUCONAZOLE
     Indication: KLEBSIELLA INFECTION
     Route: 065
     Dates: start: 2013
  2. CEFTAZIDIME. [Suspect]
     Active Substance: CEFTAZIDIME
     Indication: KLEBSIELLA INFECTION
     Route: 065
     Dates: start: 2013
  3. MEROPENEM. [Suspect]
     Active Substance: MEROPENEM
     Indication: KLEBSIELLA INFECTION
     Route: 065
     Dates: start: 2013
  4. SULPHAMETHOXAZOLE/TRIMETHOPRIM [Suspect]
     Active Substance: SULFAMETHOXAZOLE\TRIMETHOPRIM
     Indication: KLEBSIELLA INFECTION
     Route: 065
     Dates: start: 2013
  5. IMIPENEM [Suspect]
     Active Substance: IMIPENEM
     Indication: KLEBSIELLA INFECTION
     Route: 065
     Dates: start: 2013
  6. VANCOMYCIN [Suspect]
     Active Substance: VANCOMYCIN
     Indication: KLEBSIELLA INFECTION
     Route: 065
     Dates: start: 2013

REACTIONS (1)
  - Drug ineffective [Unknown]
